FAERS Safety Report 5374531-4 (Version None)
Quarter: 2007Q2

REPORT INFORMATION
  Report Type: 
  Country: None (occurrence: None)
  Receive Date: 20070629
  Receipt Date: 20070627
  Transmission Date: 20071010
  Serious: Yes (Other)
  Sender: FDA-Public Use
  Company Number: TW-BRISTOL-MYERS SQUIBB COMPANY-13828231

PATIENT
  Age: 24 Year
  Sex: Female

DRUGS (2)
  1. ARIPIPRAZOLE [Suspect]
     Dosage: TITRATED TO 30MG/DAY AFTER 1 MONTH.
  2. LAMICTAL [Suspect]
     Dosage: INCREAESED TO 25/MG/D IN THE SECOND WEEK.

REACTIONS (2)
  - DRUG INEFFECTIVE [None]
  - STEVENS-JOHNSON SYNDROME [None]
